FAERS Safety Report 5484833-9 (Version None)
Quarter: 2007Q4

REPORT INFORMATION
  Report Type: 
  Country: None (occurrence: None)
  Receive Date: 20071010
  Receipt Date: 20070929
  Transmission Date: 20080405
  Serious: Yes (Death, Life-Threatening)
  Sender: FDA-Public Use
  Company Number: 200709AGG00724

PATIENT
  Age: 58 Year
  Sex: Female

DRUGS (5)
  1. AGGRASTAT [Suspect]
     Indication: ANGINA UNSTABLE
     Dosage: (X 1 INTRAVENOUS DRIP)
     Route: 041
     Dates: start: 20070929, end: 20070929
  2. AGGRASTAT [Suspect]
     Indication: MYOCARDIAL INFARCTION
     Dosage: (X 1 INTRAVENOUS DRIP)
     Route: 041
     Dates: start: 20070929, end: 20070929
  3. ASPIRIN [Concomitant]
  4. CLEXANE [Concomitant]
  5. PLAVIX [Concomitant]

REACTIONS (1)
  - CARDIAC ARREST [None]
